FAERS Safety Report 13534946 (Version 1)
Quarter: 2017Q2

REPORT INFORMATION
  Report Type: Spontaneous
  Country: US (occurrence: US)
  Receive Date: 20170511
  Receipt Date: 20170511
  Transmission Date: 20170830
  Serious: Yes (Life-Threatening, Hospitalization, Other)
  Sender: FDA-Public Use
  Company Number: US-ORION CORPORATION ORION PHARMA-17_00002334

PATIENT
  Age: 52 Year
  Sex: Female

DRUGS (3)
  1. ADALIMUMAB [Concomitant]
     Active Substance: ADALIMUMAB
     Route: 065
  2. METHOTREXATE. [Suspect]
     Active Substance: METHOTREXATE
     Route: 065
  3. LEFLUNOMIDE. [Concomitant]
     Active Substance: LEFLUNOMIDE
     Route: 065

REACTIONS (9)
  - Toxicity to various agents [Unknown]
  - Rash [Unknown]
  - Pyrexia [Unknown]
  - Skin ulcer [Recovered/Resolved]
  - Acute kidney injury [Unknown]
  - Neutrophil count decreased [Unknown]
  - Mouth ulceration [Unknown]
  - Mucosal inflammation [Recovering/Resolving]
  - Pancytopenia [Unknown]
